FAERS Safety Report 24896019 (Version 5)
Quarter: 2025Q1

REPORT INFORMATION
  Report Type: Report from Study
  Country: US (occurrence: US)
  Receive Date: 20250128
  Receipt Date: 20250328
  Transmission Date: 20250408
  Serious: Yes (Other)
  Sender: SYNDAX
  Company Number: US-SYNDAX PHARMACEUTICALS, INC.-2025US000059

PATIENT
  Sex: Male
  Weight: 80.6 kg

DRUGS (4)
  1. REVUFORJ [Suspect]
     Active Substance: REVUMENIB CITRATE
     Indication: Myelodysplastic syndrome
     Dosage: 160 MILLIGRAM, BID
     Route: 048
     Dates: start: 20250112
  2. REVUFORJ [Suspect]
     Active Substance: REVUMENIB CITRATE
     Dosage: 110 MILLIGRAM, BID
     Route: 048
     Dates: start: 20250112
  3. BENADRYL [Suspect]
     Active Substance: DIPHENHYDRAMINE HYDROCHLORIDE
     Indication: Product used for unknown indication
     Route: 065
  4. MELATONIN [Suspect]
     Active Substance: MELATONIN
     Indication: Product used for unknown indication
     Route: 065

REACTIONS (12)
  - Red blood cell count decreased [Unknown]
  - Platelet count decreased [Unknown]
  - Poor quality sleep [Unknown]
  - Peripheral swelling [Unknown]
  - Insomnia [Unknown]
  - Blood test abnormal [Unknown]
  - Depressed mood [Unknown]
  - Drug ineffective [Unknown]
  - Herpes zoster [Unknown]
  - Taste disorder [Unknown]
  - Product dose omission issue [Unknown]
  - Off label use [Unknown]
